FAERS Safety Report 14540099 (Version 4)
Quarter: 2018Q3

REPORT INFORMATION
  Report Type: Report from Study
  Country: None (occurrence: US)
  Receive Date: 20180216
  Receipt Date: 20180829
  Transmission Date: 20181010
  Serious: Yes (Hospitalization, Other)
  Sender: FDA-Public Use
  Company Number: US-ABBVIE-18K-163-2238790-00

PATIENT
  Age: 72 Year
  Sex: Female
  Weight: 70.37 kg

DRUGS (7)
  1. HUMIRA [Suspect]
     Active Substance: ADALIMUMAB
     Indication: CROHN^S DISEASE
     Route: 058
     Dates: start: 20170330, end: 20171221
  2. HUMIRA [Suspect]
     Active Substance: ADALIMUMAB
     Route: 058
  3. VITAMIN B [Concomitant]
     Active Substance: VITAMIN B
     Indication: VITAMIN SUPPLEMENTATION
  4. METFORMIN [Concomitant]
     Active Substance: METFORMIN HYDROCHLORIDE
     Indication: TYPE 2 DIABETES MELLITUS
  5. CELECOXIB. [Concomitant]
     Active Substance: CELECOXIB
     Indication: ARTHRITIS
  6. VITAMIN B [Concomitant]
     Active Substance: VITAMIN B
     Indication: PROPHYLAXIS
  7. VALSARTAN. [Concomitant]
     Active Substance: VALSARTAN
     Indication: HYPERTENSION

REACTIONS (16)
  - Gastrointestinal disorder [Recovered/Resolved]
  - Abdominal distension [Recovered/Resolved]
  - Discomfort [Unknown]
  - Large intestine polyp [Recovered/Resolved]
  - Weight decreased [Recovered/Resolved]
  - Pain [Unknown]
  - Asthenia [Unknown]
  - Hypophagia [Recovering/Resolving]
  - Weight increased [Recovered/Resolved]
  - Productive cough [Not Recovered/Not Resolved]
  - Salivary gland disorder [Not Recovered/Not Resolved]
  - Malaise [Unknown]
  - Drug dispensing error [Unknown]
  - Dry throat [Unknown]
  - Device issue [Unknown]
  - Cholelithiasis [Unknown]

NARRATIVE: CASE EVENT DATE: 2017
